FAERS Safety Report 13295765 (Version 1)
Quarter: 2017Q1

REPORT INFORMATION
  Report Type: Report from Study
  Country: US (occurrence: CA)
  Receive Date: 20170303
  Receipt Date: 20170303
  Transmission Date: 20170428
  Serious: Yes (Hospitalization)
  Sender: FDA-Public Use
  Company Number: US-ACTELION-A-NJ2017-149480

PATIENT
  Age: 76 Year
  Sex: Female

DRUGS (16)
  1. UPTRAVI [Suspect]
     Active Substance: SELEXIPAG
     Indication: PULMONARY ARTERIAL HYPERTENSION
     Dosage: 400 UNK, UNK
     Route: 048
  2. UPTRAVI [Suspect]
     Active Substance: SELEXIPAG
     Dosage: 200 MCG, BID
     Route: 048
     Dates: start: 20170130
  3. ADCIRCA [Concomitant]
     Active Substance: TADALAFIL
  4. DOMPERIDONE [Concomitant]
     Active Substance: DOMPERIDONE
  5. SYNTHROID [Concomitant]
     Active Substance: LEVOTHYROXINE SODIUM
  6. EUROFER [Concomitant]
  7. LASIX [Concomitant]
     Active Substance: FUROSEMIDE
  8. BYSTOLIC [Concomitant]
     Active Substance: NEBIVOLOL HYDROCHLORIDE
  9. ELTROXIN [Concomitant]
     Active Substance: LEVOTHYROXINE
  10. PANTOPRAZOLE [Concomitant]
     Active Substance: PANTOPRAZOLE SODIUM
  11. ZAXINE [Concomitant]
     Active Substance: RIFAXIMIN
  12. SYMBICORT [Concomitant]
     Active Substance: BUDESONIDE\FORMOTEROL FUMARATE DIHYDRATE
  13. WARFARIN [Concomitant]
     Active Substance: WARFARIN
  14. DEXILANT [Concomitant]
     Active Substance: DEXLANSOPRAZOLE
  15. VENTOLIN [Concomitant]
     Active Substance: ALBUTEROL SULFATE
  16. SPIRONOLACTONE. [Concomitant]
     Active Substance: SPIRONOLACTONE

REACTIONS (4)
  - Intestinal obstruction [Not Recovered/Not Resolved]
  - Headache [Not Recovered/Not Resolved]
  - Abdominal pain [Not Recovered/Not Resolved]
  - Nausea [Not Recovered/Not Resolved]

NARRATIVE: CASE EVENT DATE: 20170202
